FAERS Safety Report 23066357 (Version 1)
Quarter: 2023Q4

REPORT INFORMATION
  Report Type: Spontaneous
  Country: DE (occurrence: DE)
  Receive Date: 20231015
  Receipt Date: 20231015
  Transmission Date: 20240110
  Serious: Yes (Other)
  Sender: FDA-Public Use
  Company Number: DE-TEVA-2023-DE-2934642

PATIENT
  Sex: Male

DRUGS (1)
  1. FENTANYL [Suspect]
     Active Substance: FENTANYL
     Indication: Product used for unknown indication
     Dosage: 12 MCG/H
     Route: 065

REACTIONS (16)
  - Fear of death [Unknown]
  - Dyspnoea [Unknown]
  - Chest discomfort [Unknown]
  - Dizziness [Unknown]
  - Chills [Unknown]
  - Micturition urgency [Unknown]
  - Dry mouth [Unknown]
  - Disturbance in attention [Unknown]
  - Fear [Unknown]
  - Hyperhidrosis [Unknown]
  - Restlessness [Unknown]
  - Aggression [Unknown]
  - Hyperaesthesia [Unknown]
  - Tremor [Unknown]
  - Disorientation [Unknown]
  - Hyperacusis [Unknown]
